APPROVED DRUG PRODUCT: BUSPIRONE HYDROCHLORIDE
Active Ingredient: BUSPIRONE HYDROCHLORIDE
Strength: 15MG
Dosage Form/Route: TABLET;ORAL
Application: A075388 | Product #003 | TE Code: AB
Applicant: OXFORD PHARMACEUTICALS LLC
Approved: May 9, 2002 | RLD: No | RS: No | Type: RX